FAERS Safety Report 19261348 (Version 1)
Quarter: 2021Q2

REPORT INFORMATION
  Report Type: Spontaneous
  Country: AT (occurrence: AT)
  Receive Date: 20210515
  Receipt Date: 20210515
  Transmission Date: 20210717
  Serious: Yes (Other)
  Sender: FDA-Public Use
  Company Number: AT-MICRO LABS LIMITED-ML2021-01496

PATIENT
  Age: 56 Year
  Sex: Female
  Weight: 70 kg

DRUGS (8)
  1. IOFLUPANE (123I) [Suspect]
     Active Substance: IOFLUPANE I-123
     Dosage: APPROX 185 MBQ [123I]FP?CIT
  2. MIRTAZAPINE. [Concomitant]
     Active Substance: MIRTAZAPINE
     Indication: MAJOR DEPRESSION
  3. VORTIOXETINE. [Concomitant]
     Active Substance: VORTIOXETINE
     Indication: MAJOR DEPRESSION
     Dosage: 10 MG/DIE
  4. BUPROPION. [Suspect]
     Active Substance: BUPROPION
     Dosage: INCREASED TO 300 MG/DIE ON THE DAY OF [123I]FP?CIT?SPECT
  5. ESKETAMINE [Concomitant]
     Active Substance: ESKETAMINE
     Indication: MAJOR DEPRESSION
     Dosage: 2?3 TIMES/WEEK INTRAVENOUSLY (UP TO 50MG PER INFUSION)
     Route: 042
  6. BUPROPION. [Suspect]
     Active Substance: BUPROPION
     Indication: MAJOR DEPRESSION
     Dosage: 150 MG/DIE
  7. VENLAFAXINE [Concomitant]
     Active Substance: VENLAFAXINE HYDROCHLORIDE
     Indication: MAJOR DEPRESSION
  8. ARIPIPRAZOLE. [Concomitant]
     Active Substance: ARIPIPRAZOLE
     Indication: MAJOR DEPRESSION
     Dosage: 20 MG/DIE

REACTIONS (2)
  - False positive investigation result [Recovered/Resolved]
  - Drug interaction [Unknown]
